FAERS Safety Report 8974382 (Version 1)
Quarter: 2012Q4

REPORT INFORMATION
  Report Type: 
  Country: US (occurrence: US)
  Receive Date: 20121220
  Receipt Date: 20121220
  Transmission Date: 20130627
  Serious: Yes (Other)
  Sender: FDA-Public Use
  Company Number: US-PFIZER INC-2012313011

PATIENT
  Age: 45 Year
  Sex: Male

DRUGS (6)
  1. METHYLPREDNISOLONE [Suspect]
     Indication: MS
     Dosage: 1000 mg, 1x/day for 3 days
  2. INTERFERON BETA-1A [Concomitant]
  3. GABAPENTIN [Concomitant]
  4. ACETYLSALICYLIC ACID [Concomitant]
  5. FISH OIL [Concomitant]
  6. COLECALCIFEROL [Concomitant]

REACTIONS (2)
  - Multiple sclerosis relapse [Unknown]
  - Drug effect decreased [Unknown]
